FAERS Safety Report 13133687 (Version 1)
Quarter: 2017Q1

REPORT INFORMATION
  Report Type: Spontaneous
  Country: US (occurrence: US)
  Receive Date: 20170120
  Receipt Date: 20170120
  Transmission Date: 20170428
  Serious: No
  Sender: FDA-Public Use
  Company Number: US-OTSUKA-2016_025398

PATIENT

DRUGS (2)
  1. REXULTI [Suspect]
     Active Substance: BREXPIPRAZOLE
     Dosage: UNK UNK, QD
     Route: 048
     Dates: start: 2016, end: 2016
  2. REXULTI [Suspect]
     Active Substance: BREXPIPRAZOLE
     Indication: PRODUCT USED FOR UNKNOWN INDICATION
     Dosage: UNK (TITRATED DOSE)
     Route: 065
     Dates: start: 2016, end: 2016

REACTIONS (1)
  - Headache [Unknown]

NARRATIVE: CASE EVENT DATE: 2016
